FAERS Safety Report 7486928-7 (Version None)
Quarter: 2011Q2

REPORT INFORMATION
  Report Type: 
  Country: None (occurrence: None)
  Receive Date: 20110517
  Receipt Date: 20100527
  Transmission Date: 20111010
  Serious: No
  Sender: FDA-Public Use
  Company Number: US-AMGEN-TCS414965

PATIENT
  Age: 31 Year
  Sex: Female

DRUGS (5)
  1. ENBREL [Suspect]
     Indication: PSORIASIS
  2. CLOBETASOL PROPIONATE [Concomitant]
  3. TRIAMCINOLONE [Concomitant]
  4. FLUOCINOLONE ACETONIDE [Concomitant]
  5. ENBREL [Suspect]
     Indication: PSORIATIC ARTHROPATHY
     Dosage: 50 MG, QWK
     Route: 058
     Dates: start: 20091230, end: 20100527

REACTIONS (14)
  - VOMITING [None]
  - MIGRAINE [None]
  - MALAISE [None]
  - FATIGUE [None]
  - JOINT STIFFNESS [None]
  - THERAPEUTIC RESPONSE DECREASED [None]
  - PAIN IN EXTREMITY [None]
  - ARTHRALGIA [None]
  - INCORRECT STORAGE OF DRUG [None]
  - PSORIASIS [None]
  - FEELING ABNORMAL [None]
  - MUSCULOSKELETAL STIFFNESS [None]
  - DIZZINESS [None]
  - OEDEMA PERIPHERAL [None]
